FAERS Safety Report 9376286 (Version 1)
Quarter: 2013Q2

REPORT INFORMATION
  Report Type: Spontaneous
  Country: US (occurrence: None)
  Receive Date: 20130628
  Receipt Date: 20130628
  Transmission Date: 20140414
  Serious: No
  Sender: FDA-Public Use
  Company Number: None

PATIENT
  Age: 10 Year
  Sex: Male

DRUGS (2)
  1. OMNITROPE [Suspect]
     Indication: DWARFISM
     Route: 058
     Dates: start: 20120611, end: 20130627
  2. NORDITROPIN [Suspect]

REACTIONS (4)
  - Irritability [None]
  - Aggression [None]
  - Anger [None]
  - Affective disorder [None]
